FAERS Safety Report 5326916-X (Version None)
Quarter: 2007Q2

REPORT INFORMATION
  Report Type: 
  Country: None (occurrence: None)
  Receive Date: 20070510
  Receipt Date: 20070427
  Transmission Date: 20071010
  Serious: Yes (Other)
  Sender: FDA-Public Use
  Company Number: 2007318437

PATIENT
  Sex: Female

DRUGS (1)
  1. ROGAINE [Suspect]
     Dosage: UNSPECIFIED, TOPICAL
     Route: 061
     Dates: start: 20030101

REACTIONS (2)
  - DIZZINESS [None]
  - VERTIGO [None]
